FAERS Safety Report 6610861-3 (Version None)
Quarter: 2010Q1

REPORT INFORMATION
  Report Type: 
  Country: None (occurrence: None)
  Receive Date: 20100219
  Receipt Date: 20100208
  Transmission Date: 20100710
  Serious: Yes (Hospitalization)
  Sender: FDA-Public Use
  Company Number: 2010GW000104

PATIENT
  Age: 30 Year
  Sex: Male

DRUGS (1)
  1. EDETATE CALCIUM DISODIUM [Suspect]
     Indication: METAL POISONING
     Dosage: 3000 MG;QD

REACTIONS (3)
  - GRAND MAL CONVULSION [None]
  - HAEMATOCRIT DECREASED [None]
  - HAEMOGLOBIN DECREASED [None]
